FAERS Safety Report 10396749 (Version 1)
Quarter: 2014Q3

REPORT INFORMATION
  Report Type: Spontaneous
  Country: US (occurrence: None)
  Receive Date: 20140819
  Receipt Date: 20140819
  Transmission Date: 20150326
  Serious: Yes (Disabling)
  Sender: FDA-Public Use
  Company Number: None

PATIENT
  Age: 49 Year
  Sex: Female
  Weight: 170 kg

DRUGS (1)
  1. LEVOFLOXACIN [Suspect]
     Active Substance: LEVOFLOXACIN
     Indication: SINUSITIS
     Dosage: 1 TAB ONCE DAILY TAKEN BY MOUTH
     Route: 048
     Dates: start: 20140618, end: 20140619

REACTIONS (5)
  - Influenza like illness [None]
  - Joint crepitation [None]
  - Pain in extremity [None]
  - Condition aggravated [None]
  - Arthralgia [None]

NARRATIVE: CASE EVENT DATE: 20140618
